FAERS Safety Report 8019455-9 (Version None)
Quarter: 2012Q1

REPORT INFORMATION
  Report Type: 
  Country: None (occurrence: None)
  Receive Date: 20120103
  Receipt Date: 20111228
  Transmission Date: 20120608
  Serious: Yes (Other)
  Sender: FDA-Public Use
  Company Number: PHEH2011US012616

PATIENT
  Sex: Female

DRUGS (2)
  1. METHYLPHENIDATE [Suspect]
     Dosage: UNK UKN, UNK
  2. RITALIN [Suspect]
     Dosage: UNK UKN, UNK

REACTIONS (1)
  - FIBROMYALGIA [None]
